FAERS Safety Report 14740813 (Version 1)
Quarter: 2018Q2

REPORT INFORMATION
  Report Type: Spontaneous
  Country: PR (occurrence: US)
  Receive Date: 20180410
  Receipt Date: 20180410
  Transmission Date: 20180711
  Serious: No
  Sender: FDA-Public Use
  Company Number: PR-GLAXOSMITHKLINE-PR2018GSK057452

PATIENT
  Age: 30 Year
  Sex: Female

DRUGS (1)
  1. BENLYSTA [Suspect]
     Active Substance: BELIMUMAB
     Indication: SYSTEMIC LUPUS ERYTHEMATOSUS
     Dosage: UNK, Z (MONTHLY)
     Route: 042

REACTIONS (3)
  - Eye inflammation [Unknown]
  - Dermatitis [Unknown]
  - Cheilitis [Unknown]
